FAERS Safety Report 22332904 (Version 1)
Quarter: 2023Q2

REPORT INFORMATION
  Report Type: Spontaneous
  Country: US (occurrence: US)
  Receive Date: 20230517
  Receipt Date: 20230517
  Transmission Date: 20230722
  Serious: No
  Sender: FDA-Public Use
  Company Number: US-PFIZER INC-202300188824

PATIENT
  Age: 73 Year
  Sex: Male
  Weight: 86.18 kg

DRUGS (1)
  1. PAXLOVID [Suspect]
     Active Substance: NIRMATRELVIR\RITONAVIR
     Indication: COVID-19 treatment
     Dosage: [PF-07321332 300 MG]/[RITONAVIR 100 MG] , 2X/DAY
     Dates: start: 20230507

REACTIONS (6)
  - Muscle twitching [Not Recovered/Not Resolved]
  - Insomnia [Unknown]
  - Dysgeusia [Unknown]
  - Diarrhoea [Unknown]
  - Restless legs syndrome [Unknown]
  - Feeling jittery [Unknown]

NARRATIVE: CASE EVENT DATE: 20230507
